FAERS Safety Report 7278799-9 (Version None)
Quarter: 2011Q1

REPORT INFORMATION
  Report Type: 
  Country: None (occurrence: None)
  Receive Date: 20110207
  Receipt Date: 20110201
  Transmission Date: 20110831
  Serious: Yes (Hospitalization)
  Sender: FDA-Public Use
  Company Number: US-ALLERGAN-1017022US

PATIENT
  Age: 86 Year
  Sex: Male

DRUGS (17)
  1. AMLODIPINE [Concomitant]
     Indication: HYPERTENSION
     Dosage: UNK
     Route: 048
     Dates: start: 20100914
  2. DOCETAXEL [Suspect]
     Indication: PROSTATE CANCER
     Dosage: 131 MG, UNK
     Dates: start: 20100820
  3. CC-5013 VS PLACEBO (LENALIDOMIDE) [Suspect]
     Dosage: 25 MG, UNK
     Route: 048
     Dates: start: 20101112
  4. DOCETAXEL [Suspect]
     Dosage: 131 MG, UNK
     Dates: start: 20101112
  5. CC-5013 VS PLACEBO (LENALIDOMIDE) [Suspect]
     Indication: PROSTATE CANCER
     Dosage: 25 MG, QD
     Route: 048
     Dates: start: 20100820, end: 20101028
  6. PREDNISONE [Suspect]
     Indication: PROSTATE CANCER
     Dosage: 5 MG, BID
     Dates: start: 20100820
  7. FUROSEMIDE [Concomitant]
     Indication: OEDEMA
     Dosage: 40 MG, UNK
     Route: 048
     Dates: start: 20100924
  8. METOPROLOL TARTRATE [Concomitant]
     Indication: HYPERTENSION
     Dosage: 100 MG, BID
     Route: 048
  9. CIPRO [Concomitant]
     Indication: URINARY TRACT INFECTION
     Dosage: 500 MG, BID
     Route: 048
     Dates: start: 20101020, end: 20101104
  10. COLACE [Concomitant]
     Indication: CONSTIPATION
     Dosage: 100 MG, BID
     Route: 048
     Dates: end: 20101109
  11. SANCTURA XR [Suspect]
     Indication: BLADDER SPASM
     Dosage: 60 MG, QD
     Route: 048
     Dates: start: 20101020, end: 20101028
  12. PREDNISONE [Suspect]
     Dosage: 5 MG, BID
     Dates: start: 20101112
  13. ASPIRIN [Concomitant]
     Indication: ANTICOAGULANT THERAPY
     Dosage: UNK
     Route: 048
     Dates: start: 20100716
  14. SYNTHROID [Concomitant]
     Indication: HYPOTHYROIDISM
     Dosage: UNK
     Route: 048
  15. POTASSIUM CHLORIDE [Concomitant]
     Indication: ELECTROLYTE SUBSTITUTION THERAPY
     Dosage: UNK
     Route: 048
     Dates: start: 20100924
  16. AVODART [Concomitant]
     Indication: PROSTATIC MASS
     Dosage: 0.5 MG, QD
     Route: 048
     Dates: start: 20091207
  17. HYDROCHLOROTHIAZIDE [Concomitant]
     Indication: POLYURIA
     Dosage: 25 MG, QD
     Route: 048
     Dates: start: 20100611, end: 20101104

REACTIONS (3)
  - ATRIAL FIBRILLATION [None]
  - MENTAL STATUS CHANGES [None]
  - URINARY TRACT INFECTION [None]
